FAERS Safety Report 17891399 (Version 1)
Quarter: 2020Q2

REPORT INFORMATION
  Report Type: Spontaneous
  Country: BR (occurrence: BR)
  Receive Date: 20200612
  Receipt Date: 20200612
  Transmission Date: 20200714
  Serious: Yes (Hospitalization, Other)
  Sender: FDA-Public Use
  Company Number: BR-SA-2020SA148901

PATIENT

DRUGS (4)
  1. OFOLATO [Concomitant]
     Dosage: 1 DF, QD
     Route: 048
     Dates: start: 201907, end: 201908
  2. CLEXANE [Suspect]
     Active Substance: ENOXAPARIN SODIUM
     Indication: HYPERCOAGULATION
     Dosage: 1 DF, QD (1 INJECTION IN THE MORNING)
     Route: 058
     Dates: start: 201907, end: 201908
  3. METICORTEN [Concomitant]
     Active Substance: PREDNISONE
     Indication: HYPERCOAGULATION
     Dosage: 2 DF, QD
     Route: 048
     Dates: start: 201907, end: 201908
  4. AAS [Concomitant]
     Active Substance: ASPIRIN
     Indication: HYPERCOAGULATION
     Dosage: 1 DF, QD (MORNING)
     Route: 048
     Dates: start: 201907, end: 201908

REACTIONS (4)
  - Abortion [Unknown]
  - Exposure during pregnancy [Unknown]
  - Drug ineffective for unapproved indication [Unknown]
  - Product use in unapproved indication [Unknown]

NARRATIVE: CASE EVENT DATE: 201907
